FAERS Safety Report 8560727-7 (Version None)
Quarter: 2012Q3

REPORT INFORMATION
  Report Type: 
  Country: None (occurrence: None)
  Receive Date: 20120727
  Receipt Date: 20120727
  Transmission Date: 20120928
  Serious: Yes (Hospitalization)
  Sender: FDA-Public Use
  Company Number: None

PATIENT
  Age: 63 Year
  Sex: Male
  Weight: 77.5 kg

DRUGS (5)
  1. LOVENOX [Suspect]
     Indication: PULMONARY EMBOLISM
     Dosage: 80MG BID SQ CHRONIC
     Route: 058
  2. LEVOXYL [Concomitant]
  3. ACIPHEX [Concomitant]
  4. COUMADIN [Suspect]
     Indication: PULMONARY EMBOLISM
     Dosage: 5MG/2.5 MG MWF/TTH SS PO CHRONIC
     Route: 048
  5. FLOMAX [Concomitant]

REACTIONS (2)
  - LARGE INTESTINAL ULCER [None]
  - LOWER GASTROINTESTINAL HAEMORRHAGE [None]
